FAERS Safety Report 22055265 (Version 1)
Quarter: 2023Q1

REPORT INFORMATION
  Report Type: Spontaneous
  Country: FR (occurrence: FR)
  Receive Date: 20230302
  Receipt Date: 20230302
  Transmission Date: 20230417
  Serious: Yes (Life-Threatening)
  Sender: FDA-Public Use
  Company Number: None

PATIENT
  Age: 69 Year
  Sex: Female
  Weight: 84.3 kg

DRUGS (17)
  1. JANUMET [Suspect]
     Active Substance: METFORMIN HYDROCHLORIDE\SITAGLIPTIN PHOSPHATE
     Indication: Type 2 diabetes mellitus
     Dosage: 2 DOSAGE FORM, QD
     Route: 048
     Dates: start: 20221019, end: 20221215
  2. TAHOR [Concomitant]
     Active Substance: ATORVASTATIN CALCIUM
  3. FUMARATO DE BISOPROLOL [Concomitant]
  4. FUROSEMIDE [Concomitant]
     Active Substance: FUROSEMIDE
  5. FOLIC ACID [Concomitant]
     Active Substance: FOLIC ACID
  6. INSULIN HUMAN [Concomitant]
     Active Substance: INSULIN HUMAN
  7. DOLIPRANE [Concomitant]
     Active Substance: ACETAMINOPHEN
  8. GAVISCON NF [Concomitant]
  9. MINERAL OIL [Concomitant]
     Active Substance: MINERAL OIL
  10. ELIQUIS [Concomitant]
     Active Substance: APIXABAN
  11. POTASSIUM CHLORIDE [Concomitant]
     Active Substance: POTASSIUM CHLORIDE
  12. HUMALOG [Concomitant]
     Active Substance: INSULIN LISPRO
  13. PANTOPRAZOLE [Concomitant]
     Active Substance: PANTOPRAZOLE
  14. LYRICA [Concomitant]
     Active Substance: PREGABALIN
  15. AMIODARONE [Concomitant]
     Active Substance: AMIODARONE
  16. MELATONIN [Concomitant]
     Active Substance: MELATONIN
  17. OXAZEPAM [Concomitant]
     Active Substance: OXAZEPAM

REACTIONS (2)
  - Encephalopathy [Recovered/Resolved]
  - Lactic acidosis [Recovered/Resolved]

NARRATIVE: CASE EVENT DATE: 20221216
